FAERS Safety Report 6084173-3 (Version None)
Quarter: 2009Q1

REPORT INFORMATION
  Report Type: 
  Country: None (occurrence: None)
  Receive Date: 20090204
  Receipt Date: 20080912
  Transmission Date: 20090719
  Serious: Yes (Disabling)
  Sender: FDA-Public Use
  Company Number: 277489

PATIENT
  Age: 7 Year
  Sex: Male
  Weight: 27.2 kg

DRUGS (1)
  1. NOVOLOG [Suspect]
     Indication: TYPE 1 DIABETES MELLITUS
     Dosage: VARIES WITH MEALS, SUBCUTANEOUS
     Route: 058
     Dates: start: 20050425, end: 20071231

REACTIONS (1)
  - DRUG EFFECT DECREASED [None]
